FAERS Safety Report 9113701 (Version 1)
Quarter: 2013Q1

REPORT INFORMATION
  Report Type: Report from Study
  Country: US (occurrence: US)
  Receive Date: 20130129
  Receipt Date: 20130129
  Transmission Date: 20140127
  Serious: No
  Sender: FDA-Public Use
  Company Number: US-ABBOTT-12P-163-0939464-00

PATIENT
  Age: 53 Year
  Sex: Female

DRUGS (7)
  1. HUMIRA 40 MG/0.8 ML PEN [Suspect]
     Indication: CROHN^S DISEASE
     Dates: start: 20120425
  2. APRISO [Concomitant]
     Indication: CROHN^S DISEASE
  3. DOXEPIN [Concomitant]
     Indication: INSOMNIA
  4. FLEXERIL [Concomitant]
     Indication: FIBROMYALGIA
  5. TRAMADOL [Concomitant]
     Indication: PRODUCT USED FOR UNKNOWN INDICATION
  6. VICODIN [Concomitant]
     Indication: PRODUCT USED FOR UNKNOWN INDICATION
  7. PROBIOTICS [Concomitant]
     Indication: PRODUCT USED FOR UNKNOWN INDICATION

REACTIONS (6)
  - Drug ineffective [Not Recovered/Not Resolved]
  - Nausea [Not Recovered/Not Resolved]
  - Vomiting [Not Recovered/Not Resolved]
  - Injection site swelling [Not Recovered/Not Resolved]
  - Injection site erythema [Not Recovered/Not Resolved]
  - Injection site rash [Not Recovered/Not Resolved]
